FAERS Safety Report 10475433 (Version 1)
Quarter: 2014Q3

REPORT INFORMATION
  Report Type: Spontaneous
  Country: US (occurrence: None)
  Receive Date: 20140924
  Receipt Date: 20140924
  Transmission Date: 20150326
  Serious: Yes (Life-Threatening)
  Sender: FDA-Public Use
  Company Number: None

PATIENT
  Age: 40 Year
  Sex: Male
  Weight: 77.11 kg

DRUGS (4)
  1. IMIQUIMOD CREAM 5% [Suspect]
     Active Substance: IMIQUIMOD
     Indication: SKIN PAPILLOMA
     Dosage: CREME ON AREA, ONCE DAILY, APPLY CREAM TO AREA
     Dates: start: 20090101, end: 20121231
  2. ALDARA [Suspect]
     Active Substance: IMIQUIMOD
     Indication: PAPILLOMA VIRAL INFECTION
     Dosage: CREAM, ONCE DAILY, CREAM ON AREA
     Dates: end: 20121231
  3. ALDARA [Suspect]
     Active Substance: IMIQUIMOD
     Indication: SKIN PAPILLOMA
     Dosage: CREAM, ONCE DAILY, CREAM ON AREA
     Dates: end: 20121231
  4. IMIQUIMOD CREAM 5% [Suspect]
     Active Substance: IMIQUIMOD
     Indication: PAPILLOMA VIRAL INFECTION
     Dosage: CREME ON AREA, ONCE DAILY, APPLY CREAM TO AREA
     Dates: start: 20090101, end: 20121231

REACTIONS (2)
  - Skin erosion [None]
  - Deformity [None]

NARRATIVE: CASE EVENT DATE: 20090101
